FAERS Safety Report 18192788 (Version 2)
Quarter: 2020Q4

REPORT INFORMATION
  Report Type: Spontaneous
  Country: US (occurrence: US)
  Receive Date: 20200825
  Receipt Date: 20201207
  Transmission Date: 20210113
  Serious: No
  Sender: FDA-Public Use
  Company Number: US-VERTEX PHARMACEUTICALS-2020-017059

PATIENT
  Sex: Female
  Weight: 100 kg

DRUGS (1)
  1. TRIKAFTA [Suspect]
     Active Substance: ELEXACAFTOR\IVACAFTOR\TEZACAFTOR
     Indication: CYSTIC FIBROSIS
     Dosage: 2 ORANGE TABS(100 MG ELEXA/ 50 MG TEZA/ 75 MG IVA)AM; 1 BLUE TAB (150MG IVA)PM
     Route: 048
     Dates: start: 20200211

REACTIONS (3)
  - Tinnitus [Not Recovered/Not Resolved]
  - Diarrhoea [Unknown]
  - Oedema peripheral [Not Recovered/Not Resolved]

NARRATIVE: CASE EVENT DATE: 2020
